FAERS Safety Report 4386190-8 (Version None)
Quarter: 2004Q2

REPORT INFORMATION
  Report Type: 
  Country: None (occurrence: None)
  Receive Date: 20040623
  Receipt Date: 20040611
  Transmission Date: 20050107
  Serious: Yes (Death)
  Sender: FDA-Public Use
  Company Number: GB-JNJFOC-20040603219

PATIENT
  Age: 5 Year
  Sex: Female

DRUGS (1)
  1. REMICADE [Suspect]
     Indication: JUVENILE ARTHRITIS
     Dosage: INTRAVENOUS
     Route: 042
     Dates: end: 20031008

REACTIONS (1)
  - DRUG INEFFECTIVE [None]
